FAERS Safety Report 6415691-3 (Version None)
Quarter: 2009Q4

REPORT INFORMATION
  Report Type: 
  Country: None (occurrence: None)
  Receive Date: 20091027
  Receipt Date: 20091015
  Transmission Date: 20100525
  Serious: Yes (Hospitalization)
  Sender: FDA-Public Use
  Company Number: DK-WYE-H10384909

PATIENT
  Age: 59 Year
  Sex: Male

DRUGS (4)
  1. CORDARONE [Suspect]
     Indication: ATRIAL FIBRILLATION
     Route: 048
     Dates: start: 20090108, end: 20090118
  2. CORDARONE [Suspect]
     Route: 048
     Dates: start: 20090119, end: 20090120
  3. HJERTEMAGNYL [Concomitant]
     Indication: THROMBOSIS PROPHYLAXIS
  4. ZARATOR [Concomitant]
     Indication: HYPERCHOLESTEROLAEMIA
     Route: 048
     Dates: start: 20000101

REACTIONS (3)
  - HEADACHE [None]
  - HYPERTENSION [None]
  - SINUS BRADYCARDIA [None]
